FAERS Safety Report 6627712-3 (Version None)
Quarter: 2010Q1

REPORT INFORMATION
  Report Type: 
  Country: None (occurrence: None)
  Receive Date: 20100311
  Receipt Date: 20100228
  Transmission Date: 20100710
  Serious: Yes (Other)
  Sender: FDA-Public Use
  Company Number: PHHY2009ES39436

PATIENT
  Age: 50 Year

DRUGS (7)
  1. TASIGNA [Suspect]
     Indication: CHRONIC MYELOID LEUKAEMIA
     Dosage: 400 MG, BID
     Route: 048
     Dates: start: 20090725, end: 20090801
  2. GLEEVEC [Suspect]
     Indication: CHRONIC MYELOID LEUKAEMIA
     Dosage: 400 MG, UNK
  3. ACETYLSALICYLIC ACID [Concomitant]
     Dosage: 10 MG/DAY
  4. VALSARTAN [Concomitant]
     Dosage: 160 MG/DAY
  5. ZOFRAN [Concomitant]
     Dosage: 4MG/DAY
  6. SUTRIL [Concomitant]
     Dosage: 10 MG/DAY
  7. BOI K [Concomitant]
     Dosage: 1 TABLET DAILY

REACTIONS (1)
  - PANCREATITIS ACUTE [None]
